FAERS Safety Report 9252623 (Version 1)
Quarter: 2013Q1

REPORT INFORMATION
  Report Type: Spontaneous
  Country: US (occurrence: None)
  Receive Date: 20130305
  Receipt Date: 20130305
  Transmission Date: 20140127
  Serious: Yes (Disabling)
  Sender: FDA-Public Use
  Company Number: 163-21880-12091493 (0)

PATIENT
  Age: 46 Year
  Sex: Female
  Weight: 66.1 kg

DRUGS (6)
  1. REVLIMID [Suspect]
     Indication: THYROID CANCER METASTATIC
     Route: 048
     Dates: start: 20120406, end: 20120907
  2. SYNTHROID(LEVOTHYROXINE SODIUM) (UNKNOWN) [Concomitant]
  3. MULTIVITAMINS WITH MINERALS(MULTIVITAMINS WITH MINERALS) (UNKNOWN) [Concomitant]
  4. SERTRALINE(SERTRALINE) (UNKNOWN) [Concomitant]
  5. SIMVASTATIN(SIMVASTATIN) (UNKNOWN) [Concomitant]
  6. IUD(INTRAUTERINE CONTRACEPTIVE DEVICE) (UNKNOWN) [Concomitant]

REACTIONS (2)
  - Thyroid cancer metastatic [None]
  - Disease progression [None]
